FAERS Safety Report 5405372-7 (Version None)
Quarter: 2007Q3

REPORT INFORMATION
  Report Type: 
  Country: None (occurrence: None)
  Receive Date: 20070803
  Receipt Date: 20070724
  Transmission Date: 20080115
  Serious: Yes (Hospitalization, Other)
  Sender: FDA-Public Use
  Company Number: BR-PFIZER INC-2007041100

PATIENT
  Age: 55 Year
  Sex: Male

DRUGS (9)
  1. FRONTAL [Suspect]
     Indication: NERVOUSNESS
     Route: 050
  2. FRONTAL [Suspect]
     Indication: SYNCOPE
  3. FRONTAL [Suspect]
     Indication: ILL-DEFINED DISORDER
  4. ALL OTHER THERAPEUTIC PRODUCTS [Concomitant]
     Indication: MENTAL DISORDER
  5. HALDOL [Concomitant]
     Route: 050
  6. NEULEPTIL [Concomitant]
     Route: 050
     Dates: start: 20061001
  7. FENERGAN [Concomitant]
     Route: 050
     Dates: start: 20061001
  8. TRILEPTAL [Concomitant]
     Route: 050
     Dates: start: 20061001
  9. BAMIFIX [Concomitant]
     Route: 050
     Dates: start: 20061001

REACTIONS (6)
  - APHASIA [None]
  - EATING DISORDER [None]
  - INTENTIONAL DRUG MISUSE [None]
  - METASTATIC NEOPLASM [None]
  - PNEUMONIA [None]
  - THROAT IRRITATION [None]
